FAERS Safety Report 22099242 (Version 1)
Quarter: 2023Q1

REPORT INFORMATION
  Report Type: Spontaneous
  Country: US (occurrence: US)
  Receive Date: 20230315
  Receipt Date: 20230315
  Transmission Date: 20230417
  Serious: No
  Sender: FDA-Public Use
  Company Number: US-PFIZER INC-PV202300049500

PATIENT
  Age: 57 Year
  Sex: Female

DRUGS (3)
  1. IBRANCE [Suspect]
     Active Substance: PALBOCICLIB
     Indication: Breast cancer female
     Dosage: 100 MG
  2. FASLODEX [Suspect]
     Active Substance: FULVESTRANT
     Dosage: UNK
  3. ZOMETA [Suspect]
     Active Substance: ZOLEDRONIC ACID
     Dosage: UNK

REACTIONS (9)
  - Neoplasm recurrence [Unknown]
  - Anxiety [Unknown]
  - Panic attack [Unknown]
  - Amnesia [Unknown]
  - Pseudodementia [Unknown]
  - Movement disorder [Unknown]
  - Speech disorder [Unknown]
  - Memory impairment [Unknown]
  - Nausea [Unknown]

NARRATIVE: CASE EVENT DATE: 20210101
